FAERS Safety Report 10061499 (Version 1)
Quarter: 2014Q2

REPORT INFORMATION
  Report Type: Spontaneous
  Country: US (occurrence: US)
  Receive Date: 20140407
  Receipt Date: 20140407
  Transmission Date: 20141212
  Serious: Yes (Hospitalization, Other)
  Sender: FDA-Public Use
  Company Number: US-BAYER-2014-047386

PATIENT
  Age: 42 Year
  Sex: Male

DRUGS (2)
  1. CIPRO [Suspect]
  2. COPAXONE [Suspect]
     Indication: MULTIPLE SCLEROSIS
     Dosage: 20 MG, UNK
     Dates: start: 20070919

REACTIONS (11)
  - Multiple sclerosis relapse [Recovering/Resolving]
  - Dysstasia [Recovering/Resolving]
  - Guillain-Barre syndrome [Recovering/Resolving]
  - Drug hypersensitivity [Recovering/Resolving]
  - Hypoaesthesia [Recovering/Resolving]
  - Paraesthesia [Recovering/Resolving]
  - Hypoaesthesia [Recovering/Resolving]
  - Paraesthesia [Recovering/Resolving]
  - Hypoaesthesia [Recovering/Resolving]
  - Paraesthesia [Recovering/Resolving]
  - Asthenia [None]
